FAERS Safety Report 4753462-4 (Version None)
Quarter: 2005Q3

REPORT INFORMATION
  Report Type: 
  Country: None (occurrence: None)
  Receive Date: 20050824
  Receipt Date: 20050815
  Transmission Date: 20060218
  Serious: Yes (Other)
  Sender: FDA-Public Use
  Company Number: GBWYE909615AUG05

PATIENT
  Age: 37 Year
  Sex: Female

DRUGS (2)
  1. ETHINYL ESTRADIOL AND LEVONORGESTREL [Suspect]
  2. DDAVP [Concomitant]

REACTIONS (10)
  - ASTHENIA [None]
  - BLINDNESS UNILATERAL [None]
  - BLOOD SODIUM DECREASED [None]
  - BREAST TENDERNESS [None]
  - DISORIENTATION [None]
  - DRUG INTERACTION [None]
  - HEADACHE [None]
  - HYPOTHALAMO-PITUITARY DISORDERS [None]
  - LOSS OF CONSCIOUSNESS [None]
  - THROMBOSIS [None]
